FAERS Safety Report 18894154 (Version 1)
Quarter: 2021Q1

REPORT INFORMATION
  Report Type: Spontaneous
  Country: US (occurrence: US)
  Receive Date: 20210215
  Receipt Date: 20210215
  Transmission Date: 20210420
  Serious: Yes (Other)
  Sender: FDA-Public Use
  Company Number: US-TEVA-2021-US-1879587

PATIENT
  Age: 56 Year
  Sex: Female
  Weight: 86.2 kg

DRUGS (19)
  1. TYSABRI [Suspect]
     Active Substance: NATALIZUMAB
     Indication: MULTIPLE SCLEROSIS
     Dosage: RECEIVED 160 DOSES
     Route: 065
     Dates: start: 20071217, end: 20201104
  2. MULTIVITAMIN [Concomitant]
     Active Substance: VITAMINS
     Route: 048
  3. BUPROPION HCL [Concomitant]
     Active Substance: BUPROPION HYDROCHLORIDE
     Route: 048
     Dates: start: 20200827
  4. MODAFINIL. [Suspect]
     Active Substance: MODAFINIL
     Indication: FATIGUE
     Dosage: ((TWO TABLET ONCE A MONTH)
     Route: 048
     Dates: start: 20200623
  5. VITAMIN D3 [Concomitant]
     Active Substance: CHOLECALCIFEROL
     Route: 048
  6. ZOLPIDEM [Concomitant]
     Active Substance: ZOLPIDEM TARTRATE
     Dosage: EVERY NIGHT
     Route: 048
     Dates: start: 20200811
  7. DULOXETINE. [Concomitant]
     Active Substance: DULOXETINE
     Indication: PAIN
  8. TOPIRAMATE. [Concomitant]
     Active Substance: TOPIRAMATE
     Dosage: EVERY NIGHT AT BEDTIME
     Route: 048
     Dates: start: 20191215
  9. HORIZANT [Concomitant]
     Active Substance: GABAPENTIN ENACARBIL
     Route: 048
     Dates: start: 20200518
  10. TYSABRI [Suspect]
     Active Substance: NATALIZUMAB
     Route: 042
     Dates: start: 20200212
  11. CARBAMAZEPINE. [Concomitant]
     Active Substance: CARBAMAZEPINE
     Indication: TRIGEMINAL NEURALGIA
     Route: 048
  12. DULOXETINE. [Concomitant]
     Active Substance: DULOXETINE
     Indication: DEPRESSION
     Route: 048
  13. VITAMIN B COMPLEX [Concomitant]
     Active Substance: CYANOCOBALAMIN\DEXPANTHENOL\NIACINAMIDE\PYRIDOXINE HYDROCHLORIDE\RIBOFLAVIN 5^-PHOSPHATE SODIUM\THIAMINE HYDROCHLORIDE\VITAMIN B COMPLEX
     Route: 048
  14. FISH OIL [Concomitant]
     Active Substance: FISH OIL
     Dosage: 120 TO 180 MG
     Route: 048
  15. NUEDEXTA [Concomitant]
     Active Substance: DEXTROMETHORPHAN HYDROBROMIDE\QUINIDINE SULFATE
  16. AMPYRA [Suspect]
     Active Substance: DALFAMPRIDINE
     Indication: GAIT DISTURBANCE
     Route: 048
     Dates: start: 20200529
  17. IBUPROFEN. [Concomitant]
     Active Substance: IBUPROFEN
     Dosage: AS NEEDED
     Route: 048
  18. VITAMIN C [Concomitant]
     Active Substance: ASCORBIC ACID
     Route: 048
  19. TOPAMAX [Concomitant]
     Active Substance: TOPIRAMATE

REACTIONS (28)
  - Blood pressure orthostatic abnormal [Not Recovered/Not Resolved]
  - Diarrhoea [Recovering/Resolving]
  - Eye disorder [Unknown]
  - Fatigue [Unknown]
  - Lung cancer metastatic [Not Recovered/Not Resolved]
  - Nystagmus [Unknown]
  - Dysarthria [Unknown]
  - Lymphadenopathy [Unknown]
  - Muscle spasticity [Recovered/Resolved]
  - Bladder disorder [Unknown]
  - Facial paralysis [Unknown]
  - Dizziness [Not Recovered/Not Resolved]
  - Dysphagia [Unknown]
  - Depression [Unknown]
  - Trigeminal neuralgia [Recovered/Resolved]
  - Actinic keratosis [Unknown]
  - Incontinence [Unknown]
  - Asthenia [Unknown]
  - Ophthalmoplegia [Unknown]
  - Dyspnoea exertional [Unknown]
  - Vision blurred [Unknown]
  - Tongue movement disturbance [Unknown]
  - Balance disorder [Not Recovered/Not Resolved]
  - Weight decreased [Unknown]
  - Memory impairment [Unknown]
  - Leukocytosis [Unknown]
  - Affect lability [Unknown]
  - Insomnia [Unknown]

NARRATIVE: CASE EVENT DATE: 20190612
